FAERS Safety Report 5086016-3 (Version None)
Quarter: 2006Q3

REPORT INFORMATION
  Report Type: 
  Country: None (occurrence: None)
  Receive Date: 20060817
  Receipt Date: 20060811
  Transmission Date: 20061208
  Serious: Yes (Other)
  Sender: FDA-Public Use
  Company Number: 2006-08-0843

PATIENT
  Age: 50 Year
  Sex: Female

DRUGS (2)
  1. PEG-INTERFERON ALFA-2B INJECTABLE [Suspect]
     Indication: HEPATITIS C
  2. RIBAVIRIN [Suspect]
     Indication: HEPATITIS C

REACTIONS (3)
  - LICHENIFICATION [None]
  - RASH ERYTHEMATOUS [None]
  - RASH PAPULAR [None]
